FAERS Safety Report 24328539 (Version 1)
Quarter: 2024Q3

REPORT INFORMATION
  Report Type: Spontaneous
  Country: CN (occurrence: CN)
  Receive Date: 20240917
  Receipt Date: 20240917
  Transmission Date: 20241017
  Serious: Yes (Hospitalization, Other)
  Sender: SANOFI AVENTIS
  Company Number: CN-SA-2024SA267583

PATIENT
  Age: 71 Year
  Sex: Male
  Weight: 80 kg

DRUGS (2)
  1. CLOPIDOGREL BISULFATE [Suspect]
     Active Substance: CLOPIDOGREL BISULFATE
     Indication: Percutaneous coronary intervention
     Dosage: 75 MG, QD
     Route: 048
     Dates: start: 20240801, end: 20240906
  2. ASPIRIN [Suspect]
     Active Substance: ASPIRIN
     Indication: Percutaneous coronary intervention
     Dosage: 0.1 G, QD
     Route: 048
     Dates: start: 20240801, end: 20240906

REACTIONS (12)
  - Sinusitis [Recovering/Resolving]
  - Leukoencephalopathy [Recovering/Resolving]
  - Nephrolithiasis [Recovering/Resolving]
  - Pneumonia [Recovering/Resolving]
  - Emphysema [Recovering/Resolving]
  - Hypoproteinaemia [Recovering/Resolving]
  - Haematochezia [Recovering/Resolving]
  - Abdominal pain [Recovering/Resolving]
  - Abdominal distension [Recovering/Resolving]
  - Gastrointestinal haemorrhage [Recovering/Resolving]
  - Colitis ulcerative [Recovering/Resolving]
  - Chronic gastritis [Recovering/Resolving]

NARRATIVE: CASE EVENT DATE: 20240906
